FAERS Safety Report 26057893 (Version 1)
Quarter: 2025Q4

REPORT INFORMATION
  Report Type: Spontaneous
  Country: EU (occurrence: EU)
  Receive Date: 20251118
  Receipt Date: 20251118
  Transmission Date: 20260118
  Serious: Yes (Hospitalization)
  Sender: MACLEODS
  Company Number: EU-MACLEODS PHARMA-MAC2025056312

PATIENT

DRUGS (3)
  1. SILDENAFIL [Suspect]
     Active Substance: SILDENAFIL
     Indication: Performance enhancing product use
     Route: 065
  2. NANDROLONE [Suspect]
     Active Substance: NANDROLONE
     Indication: Performance enhancing product use
     Route: 065
  3. TESTOSTERONE [Suspect]
     Active Substance: TESTOSTERONE
     Indication: Performance enhancing product use
     Route: 065

REACTIONS (10)
  - Mood swings [Unknown]
  - Suicidal ideation [Unknown]
  - Psychiatric symptom [Unknown]
  - Feeling of despair [Unknown]
  - Tachycardia [Unknown]
  - Hyperhidrosis [Unknown]
  - Restlessness [Unknown]
  - Anger [Unknown]
  - Paranoia [Unknown]
  - Drug abuse [Unknown]
